FAERS Safety Report 19251861 (Version 1)
Quarter: 2021Q2

REPORT INFORMATION
  Report Type: Spontaneous
  Country: US (occurrence: US)
  Receive Date: 20210512
  Receipt Date: 20210512
  Transmission Date: 20210717
  Serious: Yes (Other)
  Sender: FDA-Public Use
  Company Number: None

PATIENT
  Age: 52 Year
  Sex: Male
  Weight: 93.6 kg

DRUGS (2)
  1. METOPROLOL SUCC ER [Suspect]
     Active Substance: METOPROLOL SUCCINATE
     Indication: CARDIAC DISORDER
     Dosage: ?          QUANTITY:2 TABLET(S);?
     Route: 048
     Dates: start: 20200901, end: 20210430
  2. ERNESTO 97 [Concomitant]

REACTIONS (3)
  - Accidental overdose [None]
  - Tinnitus [None]
  - Hypoacusis [None]

NARRATIVE: CASE EVENT DATE: 20210419
